FAERS Safety Report 9271234 (Version 1)
Quarter: 2013Q2

REPORT INFORMATION
  Report Type: Spontaneous
  Country: IT (occurrence: IT)
  Receive Date: 20130506
  Receipt Date: 20130506
  Transmission Date: 20140414
  Serious: Yes (Hospitalization, Other)
  Sender: FDA-Public Use
  Company Number: IT-ELI_LILLY_AND_COMPANY-IT201304007077

PATIENT
  Age: 53 Year
  Sex: Female
  Weight: 68 kg

DRUGS (9)
  1. XERISTAR [Suspect]
     Dosage: 60 MG, QD
     Route: 048
     Dates: start: 20130313, end: 20130317
  2. LAMOTRIGINE [Concomitant]
     Indication: EPILEPSY
     Dosage: 100 MG, UNK
     Dates: start: 19950103, end: 20130409
  3. CARBOLITHIUM [Concomitant]
     Dosage: 300 MG, QD
     Route: 048
     Dates: start: 20130313, end: 20130319
  4. DOMINANS [Concomitant]
     Dosage: 10.5 MG, QD
     Route: 048
     Dates: start: 20130118, end: 20130321
  5. SERENASE                           /00027401/ [Concomitant]
     Dosage: 5 MG, OTHER
     Route: 030
     Dates: start: 20130319, end: 20130319
  6. CIPRALEX [Concomitant]
     Dosage: 10 MG, QD
     Dates: start: 20130118, end: 20130319
  7. LARGACTIL [Concomitant]
     Dosage: 50 MG, OTHER
     Route: 030
     Dates: start: 20130319, end: 20130319
  8. TOLEP [Concomitant]
     Dosage: 300 MG, QD
     Route: 048
     Dates: start: 19950206, end: 20130318
  9. REMERON [Concomitant]
     Dosage: 30 MG, QD
     Route: 048
     Dates: start: 20130103, end: 20130313

REACTIONS (1)
  - Neuroleptic malignant syndrome [Recovered/Resolved]
